FAERS Safety Report 10597594 (Version 2)
Quarter: 2014Q4

REPORT INFORMATION
  Report Type: Spontaneous
  Country: US (occurrence: None)
  Receive Date: 20141119
  Receipt Date: 20141218
  Transmission Date: 20150529
  Serious: Yes (Other)
  Sender: FDA-Public Use
  Company Number: DEP_02355_2014

PATIENT
  Sex: Female
  Weight: 95.26 kg

DRUGS (10)
  1. LEVOTHYROXINE [Concomitant]
     Active Substance: LEVOTHYROXINE
  2. GRALISE [Suspect]
     Active Substance: GABAPENTIN
     Indication: FIBROMYALGIA
     Route: 048
     Dates: start: 2012, end: 2014
  3. CLONAZEPAM. [Concomitant]
     Active Substance: CLONAZEPAM
  4. GRALISE [Suspect]
     Active Substance: GABAPENTIN
     Indication: IMMUNOGLOBULINS DECREASED
     Route: 048
     Dates: start: 2012, end: 2014
  5. GRALISE [Suspect]
     Active Substance: GABAPENTIN
     Indication: AUTOIMMUNE DISORDER
     Route: 048
     Dates: start: 2012, end: 2014
  6. GRALISE [Suspect]
     Active Substance: GABAPENTIN
     Indication: OFF LABEL USE
     Route: 048
     Dates: start: 2012, end: 2014
  7. DIAZEPAM. [Concomitant]
     Active Substance: DIAZEPAM
  8. VITAMIN D [Concomitant]
     Active Substance: CHOLECALCIFEROL
  9. AMITRIPTYLINE [Concomitant]
     Active Substance: AMITRIPTYLINE
  10. ESTRADIOL. [Concomitant]
     Active Substance: ESTRADIOL

REACTIONS (3)
  - Asthma [None]
  - Weight decreased [None]
  - Unable to afford prescribed medication [None]
